FAERS Safety Report 8459963 (Version 2)
Quarter: 2014Q2

REPORT INFORMATION
  Report Type: Spontaneous
  Country: US (occurrence: US)
  Receive Date: 20120314
  Receipt Date: 20140428
  Transmission Date: 20141212
  Serious: No
  Sender: FDA-Public Use
  Company Number: US-PFIZER INC-2012063499

PATIENT
  Age: 49 Year
  Sex: Male

DRUGS (2)
  1. PENICILLIN NOS [Suspect]
     Dosage: UNK
  2. WARFARIN SODIUM [Suspect]
     Dosage: UNK

REACTIONS (1)
  - Drug hypersensitivity [Unknown]
